FAERS Safety Report 9118956 (Version 1)
Quarter: 2013Q1

REPORT INFORMATION
  Report Type: Spontaneous
  Country: DE (occurrence: None)
  Receive Date: 20130130
  Receipt Date: 20130130
  Transmission Date: 20140127
  Serious: Yes (Death, Life-Threatening, Hospitalization)
  Sender: FDA-Public Use
  Company Number: DE-JNJFOC20130112129

PATIENT
  Age: 77 Year
  Sex: Male

DRUGS (9)
  1. DACOGEN [Suspect]
     Route: 042
     Dates: start: 201208
  2. VALPROIC ACID [Suspect]
     Dates: start: 20120808, end: 20121128
  3. RETINOIC ACID (TRETINOIN) [Suspect]
     Dates: start: 20120808, end: 20121128
  4. PANTOPRAZOLE (PANTOPRAZOLE) [Concomitant]
  5. LACTULOSE (LACTULOSE) [Concomitant]
  6. HALOPERIDAL (HALOPERIDOL) [Concomitant]
  7. TAVOR (LORAZEPAM) [Concomitant]
  8. VOMEX A (DIMENHYDRINATE) [Concomitant]
  9. SEVREDOL (MORPHINE SULFATE) [Concomitant]

REACTIONS (11)
  - Dyspnoea [None]
  - General physical health deterioration [None]
  - Dry skin [None]
  - Skin ulcer [None]
  - Cyanosis [None]
  - Osteomyelitis [None]
  - Pain [None]
  - Hallucination [None]
  - Pleural effusion [None]
  - Hypervolaemia [None]
  - Blood urine present [None]
